FAERS Safety Report 6360584-3 (Version None)
Quarter: 2009Q3

REPORT INFORMATION
  Report Type: 
  Country: None (occurrence: None)
  Receive Date: 20090915
  Receipt Date: 20090901
  Transmission Date: 20100115
  Serious: Yes (Hospitalization)
  Sender: FDA-Public Use
  Company Number: 2009AL002151

PATIENT
  Age: 88 Year
  Sex: Female

DRUGS (3)
  1. DIGOXIN [Suspect]
     Dosage: 0.25 MG, PO
     Route: 048
     Dates: start: 20080808
  2. PRAVASTATIN SODIUM [Concomitant]
  3. METFORMIN HCL [Concomitant]

REACTIONS (22)
  - ANHEDONIA [None]
  - ANORECTAL DISORDER [None]
  - ATELECTASIS [None]
  - ATRIAL FIBRILLATION [None]
  - CEREBRAL INFARCTION [None]
  - CEREBRAL ISCHAEMIA [None]
  - CHOLECYSTECTOMY [None]
  - DIZZINESS [None]
  - ECONOMIC PROBLEM [None]
  - FAMILY STRESS [None]
  - MENTAL DISORDER [None]
  - MITRAL VALVE DISEASE [None]
  - MULTIPLE INJURIES [None]
  - NAUSEA [None]
  - NEPHROLITHIASIS [None]
  - NODULE [None]
  - PAIN [None]
  - PULMONARY OEDEMA [None]
  - RENAL IMPAIRMENT [None]
  - SOCIAL PROBLEM [None]
  - SURGERY [None]
  - UNEVALUABLE EVENT [None]
